FAERS Safety Report 16617311 (Version 1)
Quarter: 2019Q3

REPORT INFORMATION
  Report Type: Spontaneous
  Country: US (occurrence: US)
  Receive Date: 20190723
  Receipt Date: 20190723
  Transmission Date: 20191004
  Serious: Yes (Other)
  Sender: FDA-Public Use
  Company Number: US-SUPERNUS PHARMACEUTICALS, INC.-2019SUP00379

PATIENT
  Sex: Female

DRUGS (1)
  1. TROKENDI XR [Suspect]
     Active Substance: TOPIRAMATE

REACTIONS (2)
  - Intracranial aneurysm [Unknown]
  - Memory impairment [Unknown]
